FAERS Safety Report 10067446 (Version 1)
Quarter: 2014Q2

REPORT INFORMATION
  Report Type: Spontaneous
  Country: US (occurrence: None)
  Receive Date: 20140408
  Receipt Date: 20140408
  Transmission Date: 20141212
  Serious: Yes (Life-Threatening, Hospitalization)
  Sender: FDA-Public Use
  Company Number: None

PATIENT
  Age: 60 Year
  Sex: Male
  Weight: 88 kg

DRUGS (10)
  1. ADVIL [Suspect]
     Indication: OSTEOARTHRITIS
  2. ALEVE [Suspect]
     Indication: OSTEOARTHRITIS
     Dosage: 1 TABLET
     Route: 048
     Dates: end: 20140322
  3. MELOXICAM [Suspect]
  4. LEXAPRO [Concomitant]
  5. LISINOPRIL [Concomitant]
  6. TOPROL XL [Concomitant]
  7. OMEPRAZOLE [Concomitant]
  8. AMBIEN CR [Concomitant]
  9. TRAMADOL ER [Concomitant]
  10. ANDROGEL [Concomitant]

REACTIONS (7)
  - Duodenal ulcer perforation [None]
  - Haematuria [None]
  - Anaemia [None]
  - Hypotension [None]
  - Presyncope [None]
  - Renal failure acute [None]
  - Hyperkalaemia [None]
